FAERS Safety Report 14554593 (Version 2)
Quarter: 2018Q1

REPORT INFORMATION
  Report Type: Spontaneous
  Country: BG (occurrence: BG)
  Receive Date: 20180220
  Receipt Date: 20180227
  Transmission Date: 20180509
  Serious: Yes (Other)
  Sender: FDA-Public Use
  Company Number: BG-PFIZER INC-2018070436

PATIENT
  Age: 33 Year
  Sex: Female

DRUGS (2)
  1. COLDREX /02146901/ [Concomitant]
     Dosage: UNK
     Dates: start: 201801
  2. SUTENT [Suspect]
     Active Substance: SUNITINIB MALATE
     Indication: GASTROINTESTINAL STROMAL TUMOUR
     Dosage: 37.5 MG, ONCE A DAY
     Dates: start: 20161107

REACTIONS (3)
  - Swelling [Recovered/Resolved]
  - Mucosal inflammation [Recovered/Resolved]
  - Bradycardia [Recovered/Resolved]

NARRATIVE: CASE EVENT DATE: 201612
